FAERS Safety Report 7012207-8 (Version None)
Quarter: 2010Q3

REPORT INFORMATION
  Report Type: 
  Country: None (occurrence: None)
  Receive Date: 20100924
  Receipt Date: 20100913
  Transmission Date: 20110219
  Serious: Yes (Hospitalization)
  Sender: FDA-Public Use
  Company Number: US-ASTRAZENECA-2010SE43055

PATIENT
  Sex: Female

DRUGS (3)
  1. FASLODEX [Suspect]
     Indication: BREAST CANCER METASTATIC
     Dosage: 250 MG CYCLICAL
     Route: 030
  2. DASATINIB [Suspect]
     Indication: BREAST CANCER METASTATIC
     Route: 048
     Dates: end: 20100801
  3. DASATINIB [Suspect]
     Route: 048
     Dates: start: 20100816

REACTIONS (5)
  - DYSPNOEA [None]
  - INFECTION [None]
  - NEUTROPHIL COUNT DECREASED [None]
  - PLEURAL EFFUSION [None]
  - PNEUMONIA [None]
